FAERS Safety Report 18120359 (Version 1)
Quarter: 2020Q3

REPORT INFORMATION
  Report Type: Spontaneous
  Country: GB (occurrence: GB)
  Receive Date: 20200806
  Receipt Date: 20200806
  Transmission Date: 20201103
  Serious: Yes (Hospitalization)
  Sender: FDA-Public Use
  Company Number: GB-PUMA BIOTECHNOLOGY, LTD.-2020GB004298

PATIENT
  Age: 38 Year
  Sex: Female
  Weight: 69.4 kg

DRUGS (4)
  1. NERLYNX [Suspect]
     Active Substance: NERATINIB
     Indication: BREAST CANCER METASTATIC
     Dosage: 240 MG, QD (1/DAY)
     Route: 048
     Dates: start: 20200713
  2. CAPECITABINE. [Concomitant]
     Active Substance: CAPECITABINE
     Indication: PRODUCT USED FOR UNKNOWN INDICATION
     Dosage: 1300 MG, UNK
     Route: 065
     Dates: start: 20200713
  3. LOPERAMIDE [Concomitant]
     Active Substance: LOPERAMIDE
     Indication: PRODUCT USED FOR UNKNOWN INDICATION
     Dosage: 4 MG, UNK
     Route: 065
     Dates: start: 20200713
  4. BUDESONIDE. [Concomitant]
     Active Substance: BUDESONIDE
     Indication: PRODUCT USED FOR UNKNOWN INDICATION
     Dosage: 9 MG, UNK
     Route: 065
     Dates: start: 20200713

REACTIONS (5)
  - Hypokalaemia [Recovered/Resolved]
  - Diarrhoea [Recovered/Resolved]
  - Dehydration [Recovered/Resolved]
  - Product use in unapproved indication [Unknown]
  - Off label use [Unknown]

NARRATIVE: CASE EVENT DATE: 20200718
